FAERS Safety Report 11129535 (Version 1)
Quarter: 2015Q2

REPORT INFORMATION
  Report Type: Report from Study
  Country: US (occurrence: US)
  Receive Date: 20150521
  Receipt Date: 20150521
  Transmission Date: 20150821
  Serious: Yes (Hospitalization, Other)
  Sender: FDA-Public Use
  Company Number: US-SA-2015SA064771

PATIENT
  Age: 79 Year
  Sex: Female

DRUGS (2)
  1. LASIX [Suspect]
     Active Substance: FUROSEMIDE
     Indication: FLUID RETENTION
     Route: 065
  2. AMBRISENTAN [Suspect]
     Active Substance: AMBRISENTAN
     Indication: PRODUCT USED FOR UNKNOWN INDICATION
     Route: 065
     Dates: start: 20140924

REACTIONS (8)
  - Enteritis infectious [Unknown]
  - Urinary tract infection [Unknown]
  - Renal disorder [Unknown]
  - Brain operation [Unknown]
  - Fluid retention [Unknown]
  - Gout [Unknown]
  - Anaemia [Unknown]
  - International normalised ratio abnormal [Unknown]
